FAERS Safety Report 4507577-6 (Version None)
Quarter: 2004Q4

REPORT INFORMATION
  Report Type: 
  Country: None (occurrence: None)
  Receive Date: 20041118
  Receipt Date: 20041108
  Transmission Date: 20050328
  Serious: Yes (Other)
  Sender: FDA-Public Use
  Company Number: 25601

PATIENT
  Age: 40 Year
  Sex: Female

DRUGS (1)
  1. ALDARA [Suspect]
     Indication: CONDYLOMA ACUMINATUM
     Dosage: (ALTERNATE NIGHTS) TOPICAL
     Route: 061
     Dates: start: 20040810, end: 20040815

REACTIONS (1)
  - VULVAL ABSCESS [None]
